FAERS Safety Report 18495868 (Version 1)
Quarter: 2020Q4

REPORT INFORMATION
  Report Type: Spontaneous
  Country: US (occurrence: US)
  Receive Date: 20201112
  Receipt Date: 20201112
  Transmission Date: 20210114
  Serious: Yes (Hospitalization)
  Sender: FDA-Public Use
  Company Number: None

PATIENT
  Age: 80 Year
  Sex: Male
  Weight: 62.3 kg

DRUGS (2)
  1. CARBOPLATIN. [Suspect]
     Active Substance: CARBOPLATIN
     Indication: CHEMOTHERAPY
     Dates: end: 20201026
  2. TAXOL [Suspect]
     Active Substance: PACLITAXEL
     Dates: end: 20201026

REACTIONS (3)
  - Febrile neutropenia [None]
  - Sepsis [None]
  - Chills [None]

NARRATIVE: CASE EVENT DATE: 20201101
